FAERS Safety Report 9336891 (Version 2)
Quarter: 2013Q3

REPORT INFORMATION
  Report Type: Report from Study
  Country: JP (occurrence: JP)
  Receive Date: 20130607
  Receipt Date: 20130807
  Transmission Date: 20140515
  Serious: Yes (Other)
  Sender: FDA-Public Use
  Company Number: JP-ROCHE-1232008

PATIENT
  Age: 60 Year
  Sex: Male
  Weight: 65 kg

DRUGS (23)
  1. METHOXY POLYETHYLENE GLYCOL-EPOETIN BETA [Suspect]
     Indication: NEPHROGENIC ANAEMIA
     Route: 042
     Dates: start: 20120424, end: 20121023
  2. METHOXY POLYETHYLENE GLYCOL-EPOETIN BETA [Suspect]
     Indication: NEPHROGENIC ANAEMIA
     Route: 042
     Dates: start: 20121113, end: 20121225
  3. METHOXY POLYETHYLENE GLYCOL-EPOETIN BETA [Suspect]
     Indication: NEPHROGENIC ANAEMIA
     Route: 042
     Dates: start: 20130108, end: 20130122
  4. METHOXY POLYETHYLENE GLYCOL-EPOETIN BETA [Suspect]
     Indication: NEPHROGENIC ANAEMIA
     Route: 042
     Dates: start: 20130212, end: 20130312
  5. OLMETEC [Concomitant]
     Route: 048
     Dates: start: 20071004, end: 20121015
  6. ATELEC [Concomitant]
     Route: 048
     Dates: start: 20110512, end: 20120416
  7. ATELEC [Concomitant]
     Dosage: NON-DIALYSIS DAY
     Route: 048
     Dates: start: 20120417
  8. ATELEC [Concomitant]
     Dosage: MORNING OF DIALYSIS DAY
     Route: 048
     Dates: start: 20120417
  9. NEXIUM [Concomitant]
     Route: 048
     Dates: start: 20110920
  10. ADALAT CR [Concomitant]
     Route: 048
     Dates: start: 20100325
  11. TANATRIL [Concomitant]
     Route: 048
     Dates: start: 20090714
  12. CARDENALIN [Concomitant]
     Route: 048
     Dates: start: 20071016
  13. CATAPRES [Concomitant]
     Route: 048
     Dates: start: 20110201
  14. RASILEZ [Concomitant]
     Route: 048
     Dates: start: 20110906
  15. CINACALCET HYDROCHLORIDE [Concomitant]
     Dosage: DRU REPORTED AS REGPARA
     Route: 048
     Dates: start: 20110825, end: 20121024
  16. CINACALCET HYDROCHLORIDE [Concomitant]
     Route: 048
     Dates: start: 20121025
  17. EURODIN [Concomitant]
     Route: 048
     Dates: start: 20110604
  18. MUCOSTA [Concomitant]
     Route: 048
     Dates: start: 20050303
  19. LAC-B [Concomitant]
     Route: 048
     Dates: start: 20050303
  20. FOSRENOL [Concomitant]
     Route: 048
     Dates: start: 20090718
  21. METHYCOBAL [Concomitant]
     Route: 048
     Dates: start: 20110512
  22. AZILSARTAN [Concomitant]
     Dosage: NON-DIALYSIS DAY
     Route: 048
     Dates: start: 20121016
  23. AZILSARTAN [Concomitant]
     Dosage: MORNING OF DIALYSIS DAY
     Route: 048
     Dates: start: 20121016

REACTIONS (2)
  - Anaemia [Recovered/Resolved]
  - Nutritional condition abnormal [Unknown]
